FAERS Safety Report 22365131 (Version 1)
Quarter: 2023Q2

REPORT INFORMATION
  Report Type: Spontaneous
  Country: US (occurrence: US)
  Receive Date: 20230525
  Receipt Date: 20230525
  Transmission Date: 20230722
  Serious: No
  Sender: FDA-Public Use
  Company Number: US-GLAXOSMITHKLINE-USCH2023024669

PATIENT
  Age: 33 Year
  Sex: Male

DRUGS (1)
  1. NICORETTE [Suspect]
     Active Substance: NICOTINE
     Indication: Product used for unknown indication
     Dosage: 5 DF
     Dates: start: 20230517

REACTIONS (8)
  - Lung disorder [Unknown]
  - Burning sensation [Unknown]
  - Dizziness [Unknown]
  - Nasal congestion [Unknown]
  - Dental caries [Unknown]
  - Sleep disorder [Unknown]
  - Sinusitis [Unknown]
  - Hot flush [Unknown]

NARRATIVE: CASE EVENT DATE: 20230501
